FAERS Safety Report 25951428 (Version 1)
Quarter: 2025Q4

REPORT INFORMATION
  Report Type: Spontaneous
  Country: US (occurrence: US)
  Receive Date: 20251023
  Receipt Date: 20251023
  Transmission Date: 20260118
  Serious: Yes (Life-Threatening, Hospitalization, Other)
  Sender: IPCA
  Company Number: US-IPCA LABORATORIES LIMITED-IPC-2025-US-002826

PATIENT

DRUGS (5)
  1. PAROXETINE [Interacting]
     Active Substance: PAROXETINE
     Indication: Product used for unknown indication
     Dosage: 40 MILLIGRAM, BID
     Route: 065
  2. QUETIAPINE [Suspect]
     Active Substance: QUETIAPINE
     Indication: Sedation
     Dosage: 50 MILLIGRAM, SINGLE
     Route: 065
  3. ABILIFY [Interacting]
     Active Substance: ARIPIPRAZOLE
     Indication: Product used for unknown indication
     Dosage: 5 MILLIGRAM
     Route: 065
  4. ABILIFY [Interacting]
     Active Substance: ARIPIPRAZOLE
     Dosage: 10 MILLIGRAM
     Route: 065
  5. BENZTROPINE [Suspect]
     Active Substance: BENZTROPINE
     Indication: Product used for unknown indication
     Dosage: UNK
     Route: 065

REACTIONS (7)
  - Serotonin syndrome [Recovered/Resolved]
  - Hypokalaemia [Recovered/Resolved]
  - Metabolic acidosis [Recovered/Resolved]
  - Anaemia [Recovered/Resolved]
  - Hypomagnesaemia [Recovered/Resolved]
  - Hypotension [Recovered/Resolved]
  - Drug interaction [Unknown]
